FAERS Safety Report 4976746-3 (Version None)
Quarter: 2006Q2

REPORT INFORMATION
  Report Type: 
  Country: None (occurrence: None)
  Receive Date: 20060419
  Receipt Date: 20050331
  Transmission Date: 20061013
  Serious: Yes (Hospitalization, Disabling)
  Sender: FDA-Public Use
  Company Number: US-MERCK-0504USA00221

PATIENT
  Age: 66 Year
  Sex: Female
  Weight: 86 kg

DRUGS (11)
  1. STARLIX [Concomitant]
     Route: 065
  2. VIOXX [Suspect]
     Indication: ARTHRITIS
     Route: 048
     Dates: start: 20010101
  3. SYNTHROID [Concomitant]
     Route: 065
  4. MIACALCIN [Concomitant]
     Route: 065
  5. ACTOS [Concomitant]
     Route: 065
  6. PROMETHAZINE [Concomitant]
     Route: 065
  7. CODEINE [Concomitant]
     Route: 065
  8. LEVOXYL [Concomitant]
     Route: 065
  9. ASPIRIN [Concomitant]
     Route: 065
  10. [THERAPY UNSPECIFIED] [Concomitant]
     Route: 065
  11. PHENTERMINE [Concomitant]
     Route: 065

REACTIONS (11)
  - BLOOD CHOLESTEROL INCREASED [None]
  - CARDIAC FAILURE CONGESTIVE [None]
  - CHEST PAIN [None]
  - CORONARY ARTERY OCCLUSION [None]
  - COUGH [None]
  - DIABETES MELLITUS [None]
  - DIABETIC CARDIOMYOPATHY [None]
  - HYPERTHYROIDISM [None]
  - OBESITY [None]
  - SQUAMOUS CELL CARCINOMA [None]
  - SYNCOPE [None]
